FAERS Safety Report 4340001-5 (Version None)
Quarter: 2004Q2

REPORT INFORMATION
  Report Type: 
  Country: None (occurrence: None)
  Receive Date: 20040416
  Receipt Date: 20040224
  Transmission Date: 20050107
  Serious: Yes (Life-Threatening, Hospitalization, Other)
  Sender: FDA-Public Use
  Company Number: US-MERCK-0402USA01763

PATIENT
  Age: 55 Year
  Sex: Male
  Weight: 75 kg

DRUGS (13)
  1. BENZTROPINE MESYLATE [Concomitant]
     Route: 065
  2. DANAZOL [Suspect]
     Indication: THROMBOCYTOPENIA
     Route: 065
     Dates: start: 20030101, end: 20030829
  3. INSULIN [Concomitant]
     Route: 065
  4. LEVAQUIN [Suspect]
     Indication: URINARY TRACT INFECTION
     Route: 048
     Dates: start: 20030829, end: 20030829
  5. PRINIVIL [Concomitant]
     Route: 048
  6. METFORMIN [Concomitant]
     Indication: DIABETES MELLITUS
     Route: 048
     Dates: end: 20030829
  7. OLANZAPINE [Concomitant]
     Indication: SCHIZOPHRENIA
     Route: 048
     Dates: end: 20030829
  8. ZOLOFT [Concomitant]
     Indication: DEPRESSION
     Route: 048
     Dates: end: 20030829
  9. ZOCOR [Suspect]
     Indication: BLOOD CHOLESTEROL INCREASED
     Route: 048
     Dates: end: 20030804
  10. ZOCOR [Suspect]
     Route: 048
     Dates: start: 20030805, end: 20030829
  11. ZOCOR [Suspect]
     Indication: BLOOD TRIGLYCERIDES INCREASED
     Route: 048
     Dates: end: 20030804
  12. ZOCOR [Suspect]
     Route: 048
     Dates: start: 20030805, end: 20030829
  13. VENLAFAXINE HYDROCHLORIDE [Concomitant]
     Route: 065

REACTIONS (7)
  - DIALYSIS [None]
  - DRUG INTERACTION [None]
  - MEDICATION ERROR [None]
  - RENAL FAILURE ACUTE [None]
  - RHABDOMYOLYSIS [None]
  - TREATMENT NONCOMPLIANCE [None]
  - URINARY TRACT INFECTION [None]
